FAERS Safety Report 12920041 (Version 3)
Quarter: 2016Q4

REPORT INFORMATION
  Report Type: Spontaneous
  Country: US (occurrence: US)
  Receive Date: 20161107
  Receipt Date: 20161207
  Transmission Date: 20170207
  Serious: No
  Sender: FDA-Public Use
  Company Number: US-GLAXOSMITHKLINE-US2016161834

PATIENT
  Age: 35 Year
  Sex: Female

DRUGS (1)
  1. TRANSDERM SCOP [Suspect]
     Active Substance: SCOPOLAMINE
     Indication: DROOLING
     Dosage: UNK
     Route: 061

REACTIONS (3)
  - Inappropriate schedule of drug administration [Unknown]
  - Intentional product use issue [Unknown]
  - Product quality issue [Unknown]
